FAERS Safety Report 17494111 (Version 1)
Quarter: 2020Q1

REPORT INFORMATION
  Report Type: Spontaneous
  Country: US (occurrence: US)
  Receive Date: 20200304
  Receipt Date: 20200304
  Transmission Date: 20200409
  Serious: Yes (Death, Hospitalization)
  Sender: FDA-Public Use
  Company Number: US-MYLANLABS-2020M1020960

PATIENT
  Age: 11 Year
  Sex: Male

DRUGS (3)
  1. FAT EMULSION NOS [Suspect]
     Active Substance: EGG PHOSPHOLIPIDS\SAFFLOWER OIL\SOYBEAN OIL
     Indication: LOCAL ANAESTHETIC SYSTEMIC TOXICITY
     Dosage: EMULSION
     Route: 042
  2. LIDOCAINE. [Suspect]
     Active Substance: LIDOCAINE
     Indication: IRRIGATION THERAPY
     Dosage: INSTILLED IN THE CAECAL PORT
     Route: 065
  3. NALOXONE [Suspect]
     Active Substance: NALOXONE
     Indication: LOCAL ANAESTHETIC SYSTEMIC TOXICITY
     Dosage: UNK
     Route: 065

REACTIONS (5)
  - Seizure [Fatal]
  - Local anaesthetic systemic toxicity [Fatal]
  - Accidental exposure to product [Fatal]
  - Drug ineffective [Fatal]
  - Cardiac arrest [Fatal]
